FAERS Safety Report 4359356-0 (Version None)
Quarter: 2004Q2

REPORT INFORMATION
  Report Type: 
  Country: None (occurrence: None)
  Receive Date: 20040511
  Receipt Date: 20040511
  Transmission Date: 20050107
  Serious: Yes (Hospitalization, Other)
  Sender: FDA-Public Use
  Company Number: DEU-2004-0000715

PATIENT
  Age: 46 Year
  Sex: Male
  Weight: 95 kg

DRUGS (1)
  1. OXYGESIC (OXYCODONE HYDROCHLORIDE) CR [Suspect]
     Indication: PAIN
     Dosage: 80 MG, DAILY, ORAL
     Route: 048
     Dates: start: 20031205, end: 20040105

REACTIONS (9)
  - BURNING SENSATION [None]
  - DIZZINESS [None]
  - ERYTHEMA [None]
  - EXANTHEM [None]
  - EYE IRRITATION [None]
  - EYELID OEDEMA [None]
  - NAUSEA [None]
  - PRURITUS [None]
  - RASH SCALY [None]
